FAERS Safety Report 10537595 (Version 1)
Quarter: 2014Q4

REPORT INFORMATION
  Report Type: Spontaneous
  Country: JP (occurrence: None)
  Receive Date: 20141021
  Receipt Date: 20141021
  Transmission Date: 20150529
  Serious: Yes (Death)
  Sender: FDA-Public Use
  Company Number: FK201404279

PATIENT
  Age: 69 Year
  Sex: Male

DRUGS (2)
  1. NEDAPLATIN [Suspect]
     Active Substance: NEDAPLATIN
     Indication: SQUAMOUS CELL CARCINOMA
     Dosage: ON DAY 1 AND 8
  2. IRINOTECAN [Suspect]
     Active Substance: IRINOTECAN
     Indication: SQUAMOUS CELL CARCINOMA
     Dosage: ON DAY 1 AND 8

REACTIONS (4)
  - Interstitial lung disease [None]
  - Diarrhoea [None]
  - Febrile neutropenia [None]
  - Intestinal perforation [None]
